FAERS Safety Report 23300798 (Version 2)
Quarter: 2024Q2

REPORT INFORMATION
  Report Type: Report from Study
  Country: CN (occurrence: CN)
  Receive Date: 20231215
  Receipt Date: 20240404
  Transmission Date: 20240715
  Serious: Yes (Hospitalization)
  Sender: FDA-Public Use
  Company Number: CN-TAKEDA-2023TUS117217

PATIENT
  Age: 34 Year
  Sex: Female
  Weight: 62 kg

DRUGS (5)
  1. ANAGRELIDE [Suspect]
     Active Substance: ANAGRELIDE
     Indication: Product used for unknown indication
     Dosage: 0.5 MILLIGRAM, BID
     Route: 048
     Dates: start: 20230302, end: 20230309
  2. ANAGRELIDE [Suspect]
     Active Substance: ANAGRELIDE
     Dosage: 0.5 MILLIGRAM, TID
     Route: 048
     Dates: start: 20230310, end: 20230315
  3. ANAGRELIDE [Suspect]
     Active Substance: ANAGRELIDE
     Dosage: 1 MILLIGRAM, BID
     Route: 048
     Dates: start: 20230316, end: 20230719
  4. ANAGRELIDE [Suspect]
     Active Substance: ANAGRELIDE
     Dosage: 0.5 MILLIGRAM, TID
     Route: 048
     Dates: start: 20230720, end: 20231107
  5. DIETARY SUPPLEMENT\UBIDECARENONE [Concomitant]
     Active Substance: DIETARY SUPPLEMENT\UBIDECARENONE
     Dosage: UNK
     Route: 065
     Dates: start: 202305

REACTIONS (3)
  - Arteriosclerosis [Unknown]
  - Coronary artery disease [Unknown]
  - Palpitations [Not Recovered/Not Resolved]

NARRATIVE: CASE EVENT DATE: 20230901
